FAERS Safety Report 5228233-5 (Version None)
Quarter: 2007Q1

REPORT INFORMATION
  Report Type: 
  Country: None (occurrence: None)
  Receive Date: 20070130
  Receipt Date: 20070118
  Transmission Date: 20070707
  Serious: Yes (Hospitalization)
  Sender: FDA-Public Use
  Company Number: 2007BI000266

PATIENT
  Age: 50 Year
  Sex: Female

DRUGS (1)
  1. NATALIZUMAB [Suspect]
     Indication: MULTIPLE SCLEROSIS
     Dosage: 300 MG;QW;IV
     Route: 030
     Dates: start: 20061102

REACTIONS (2)
  - BRONCHITIS [None]
  - MULTIPLE SCLEROSIS RELAPSE [None]
